FAERS Safety Report 7164120-3 (Version None)
Quarter: 2010Q4

REPORT INFORMATION
  Report Type: 
  Country: None (occurrence: None)
  Receive Date: 20101215
  Receipt Date: 20101207
  Transmission Date: 20110411
  Serious: Yes (Other)
  Sender: FDA-Public Use
  Company Number: JP-B.I. PHARMACEUTICALS,INC./RIDGEFIELD-2010-DE-06572GD

PATIENT
  Age: 75 Year
  Sex: Male

DRUGS (10)
  1. TELMISARTAN [Suspect]
     Indication: HYPERTENSION
     Dosage: 40 MG
     Dates: end: 20090801
  2. EZETIMIBE [Suspect]
     Indication: HYPERCHOLESTEROLAEMIA
     Dosage: 10 MG
     Dates: start: 20080701, end: 20090801
  3. PIOGLITAZONE [Suspect]
     Indication: INSULIN RESISTANCE
     Dosage: 15 MG
  4. PIOGLITAZONE [Suspect]
     Dosage: 30 MG
     Dates: end: 20080901
  5. PIOGLITAZONE [Suspect]
     Dosage: 15 MG
     Dates: start: 20080901, end: 20090801
  6. ROSUVASTATIN [Suspect]
     Indication: HYPERCHOLESTEROLAEMIA
     Dosage: 2.5 MG
     Dates: start: 20080601, end: 20080701
  7. VOGLIBOSE [Concomitant]
     Indication: INSULIN RESISTANCE
     Dosage: 0.6 MG
  8. GLIMEPIRIDE [Concomitant]
     Indication: INSULIN RESISTANCE
     Dosage: 1 MG
  9. MITIGLINIDE [Concomitant]
     Indication: INSULIN RESISTANCE
     Dosage: 30 MG
  10. GLICLAZIDE [Concomitant]
     Indication: INSULIN RESISTANCE
     Dosage: 40 MG

REACTIONS (3)
  - BLOOD CREATINE PHOSPHOKINASE INCREASED [None]
  - BLOOD CREATININE INCREASED [None]
  - IN-STENT CORONARY ARTERY RESTENOSIS [None]
